FAERS Safety Report 4334794-0 (Version None)
Quarter: 2004Q2

REPORT INFORMATION
  Report Type: 
  Country: None (occurrence: None)
  Receive Date: 20040407
  Receipt Date: 20040407
  Transmission Date: 20050107
  Serious: Yes (Death, Hospitalization)
  Sender: FDA-Public Use
  Company Number: None

PATIENT
  Sex: Female
  Weight: 39.0093 kg

DRUGS (1)
  1. REMICADE [Suspect]
     Indication: RHEUMATOID ARTHRITIS
     Dosage: 300 MG IV
     Route: 042
     Dates: start: 20020926, end: 20031219

REACTIONS (6)
  - ABDOMINAL ABSCESS [None]
  - CARDIO-RESPIRATORY ARREST [None]
  - LARGE INTESTINE PERFORATION [None]
  - OVARIAN CANCER [None]
  - OVARIAN RUPTURE [None]
  - VENTRICULAR TACHYCARDIA [None]
